FAERS Safety Report 5455293-9 (Version None)
Quarter: 2007Q3

REPORT INFORMATION
  Report Type: 
  Country: None (occurrence: None)
  Receive Date: 20070918
  Receipt Date: 20070910
  Transmission Date: 20080115
  Serious: Yes (Hospitalization, Other)
  Sender: FDA-Public Use
  Company Number: US-ELI_LILLY_AND_COMPANY-US200709001689

PATIENT
  Age: 76 Year
  Sex: Female

DRUGS (1)
  1. FORTEO [Suspect]
     Dates: start: 20070801

REACTIONS (5)
  - DIZZINESS [None]
  - JOINT SPRAIN [None]
  - JOINT SWELLING [None]
  - LOSS OF CONSCIOUSNESS [None]
  - STRESS FRACTURE [None]
